FAERS Safety Report 6449034-6 (Version None)
Quarter: 2009Q4

REPORT INFORMATION
  Report Type: 
  Country: None (occurrence: None)
  Receive Date: 20091120
  Receipt Date: 20091113
  Transmission Date: 20100525
  Serious: Yes (Other)
  Sender: FDA-Public Use
  Company Number: D0064045A

PATIENT
  Age: 67 Year
  Sex: Male

DRUGS (2)
  1. REQUIP [Suspect]
     Dosage: 2MG UNKNOWN
     Route: 048
  2. CABERGOLINE [Concomitant]
     Route: 065

REACTIONS (1)
  - PSYCHOTIC DISORDER [None]
